FAERS Safety Report 26124050 (Version 1)
Quarter: 2025Q4

REPORT INFORMATION
  Report Type: Spontaneous
  Country: EU (occurrence: EU)
  Receive Date: 20251205
  Receipt Date: 20251205
  Transmission Date: 20260118
  Serious: Yes (Other)
  Sender: ROCHE
  Company Number: EU-ROCHE-10000446305

PATIENT
  Age: 64 Year
  Sex: Male

DRUGS (4)
  1. ATEZOLIZUMAB [Suspect]
     Active Substance: ATEZOLIZUMAB
     Indication: Hepatocellular carcinoma
     Dosage: CYCLES 1-3
     Route: 042
     Dates: start: 20250520
  2. BEVACIZUMAB [Suspect]
     Active Substance: BEVACIZUMAB
     Indication: Hepatocellular carcinoma
     Dosage: 15 MG/KG, CYCLES 1-3
     Route: 065
     Dates: start: 20250520
  3. BEVACIZUMAB [Suspect]
     Active Substance: BEVACIZUMAB
     Dosage: 15 MG/KG, CYCLES 4-9
     Route: 065
  4. ATEZOLIZUMAB [Suspect]
     Active Substance: ATEZOLIZUMAB
     Indication: Hepatocellular carcinoma
     Dosage: CYCLES 4-9
     Route: 058

REACTIONS (5)
  - Haematotoxicity [Unknown]
  - Embolism [Unknown]
  - Hypertension [Unknown]
  - Haemorrhage [Unknown]
  - Cardiac failure [Unknown]
